FAERS Safety Report 5448303-6 (Version None)
Quarter: 2007Q3

REPORT INFORMATION
  Report Type: 
  Country: None (occurrence: None)
  Receive Date: 20070906
  Receipt Date: 20070821
  Transmission Date: 20080115
  Serious: Yes (Other)
  Sender: FDA-Public Use
  Company Number: 8026222

PATIENT
  Age: 9 Year
  Sex: Male

DRUGS (1)
  1. EQUASYM [Suspect]
     Dosage: 30 MG 1/D
     Dates: start: 20070201

REACTIONS (1)
  - IMPULSE-CONTROL DISORDER [None]
